FAERS Safety Report 11822973 (Version 1)
Quarter: 2015Q4

REPORT INFORMATION
  Report Type: Report from Study
  Country: US (occurrence: US)
  Receive Date: 20151210
  Receipt Date: 20151210
  Transmission Date: 20160305
  Serious: No
  Sender: FDA-Public Use
  Company Number: US-CELGENEUS-USA-2015111971

PATIENT

DRUGS (1)
  1. REVLIMID [Suspect]
     Active Substance: LENALIDOMIDE
     Indication: PLASMA CELL MYELOMA
     Route: 048

REACTIONS (11)
  - Mean cell haemoglobin increased [Unknown]
  - Haematocrit decreased [Unknown]
  - Light chain analysis increased [Unknown]
  - White blood cell count decreased [Unknown]
  - Respiratory tract infection [Unknown]
  - Blood immunoglobulin G decreased [Unknown]
  - Haemoglobin decreased [Unknown]
  - Mean cell volume increased [Unknown]
  - Blood immunoglobulin M decreased [Unknown]
  - Red blood cell count decreased [Unknown]
  - Monocyte count decreased [Unknown]
